FAERS Safety Report 5474189-X (Version None)
Quarter: 2007Q3

REPORT INFORMATION
  Report Type: 
  Country: None (occurrence: None)
  Receive Date: 20070928
  Receipt Date: 20070928
  Transmission Date: 20080115
  Serious: No
  Sender: FDA-Public Use
  Company Number: None

PATIENT
  Age: 20 Year
  Sex: Female

DRUGS (1)
  1. MINOCYCLINE HCL [Suspect]
     Dates: start: 20040611, end: 20060101

REACTIONS (5)
  - ARTHRALGIA [None]
  - AUTOIMMUNE HEPATITIS [None]
  - LIVER INJURY [None]
  - PAIN [None]
  - PAIN IN EXTREMITY [None]
